FAERS Safety Report 17105999 (Version 1)
Quarter: 2019Q4

REPORT INFORMATION
  Report Type: Report from Study
  Country: None (occurrence: CA)
  Receive Date: 20191203
  Receipt Date: 20191203
  Transmission Date: 20200122
  Serious: Yes (Other)
  Sender: FDA-Public Use
  Company Number: CA-ABBVIE-19K-028-3179082-00

PATIENT
  Sex: Male

DRUGS (1)
  1. HUMIRA [Suspect]
     Active Substance: ADALIMUMAB
     Indication: UVEITIS
     Route: 058
     Dates: start: 20190305

REACTIONS (3)
  - Vision blurred [Recovering/Resolving]
  - Altered visual depth perception [Recovering/Resolving]
  - Eye disorder [Recovering/Resolving]

NARRATIVE: CASE EVENT DATE: 2019
